FAERS Safety Report 20830928 (Version 6)
Quarter: 2022Q2

REPORT INFORMATION
  Report Type: Spontaneous
  Country: US (occurrence: US)
  Receive Date: 20220515
  Receipt Date: 20220608
  Transmission Date: 20220721
  Serious: Yes (Other)
  Sender: FDA-Public Use
  Company Number: US-TEVA-2022-US-2035421

PATIENT
  Age: 39 Year

DRUGS (5)
  1. LORAZEPAM [Suspect]
     Active Substance: LORAZEPAM
     Indication: Anxiety
     Dosage: 3 MILLIGRAM DAILY; 1 MG, THREE TIMES A DAY
     Route: 065
     Dates: start: 20220502, end: 20220510
  2. PAROXETINE [Concomitant]
     Active Substance: PAROXETINE
  3. BISOPROLOL [Concomitant]
     Active Substance: BISOPROLOL
  4. DIAZEPAM [Concomitant]
     Active Substance: DIAZEPAM
  5. LORAZEPAM [Concomitant]
     Active Substance: LORAZEPAM

REACTIONS (13)
  - Mental impairment [Recovered/Resolved]
  - Drug ineffective [Unknown]
  - Withdrawal syndrome [Recovered/Resolved]
  - Reading disorder [Recovered/Resolved]
  - Insomnia [Recovered/Resolved]
  - Discomfort [Recovered/Resolved]
  - Emotional distress [Recovered/Resolved]
  - Feeling abnormal [Unknown]
  - Product substitution issue [Unknown]
  - Agitation [Recovered/Resolved]
  - Loss of personal independence in daily activities [Unknown]
  - Illness [Unknown]
  - Insomnia [Recovered/Resolved]

NARRATIVE: CASE EVENT DATE: 20220501
